FAERS Safety Report 17901694 (Version 1)
Quarter: 2020Q2

REPORT INFORMATION
  Report Type: Spontaneous
  Country: US (occurrence: US)
  Receive Date: 20200616
  Receipt Date: 20200616
  Transmission Date: 20200714
  Serious: No
  Sender: FDA-Public Use
  Company Number: US-ADVANZ PHARMA-GSH201901-000155

PATIENT

DRUGS (1)
  1. PARNATE,TRANYLCYPROMINE SULFATE (AUTHORIZED GENERIC) [Suspect]
     Active Substance: TRANYLCYPROMINE SULFATE

REACTIONS (1)
  - Hypoaesthesia [Unknown]
